FAERS Safety Report 14776533 (Version 2)
Quarter: 2018Q2

REPORT INFORMATION
  Report Type: Spontaneous
  Country: PT (occurrence: PT)
  Receive Date: 20180418
  Receipt Date: 20180524
  Transmission Date: 20180711
  Serious: Yes (Other)
  Sender: FDA-Public Use
  Company Number: PHHY2015PT161988

PATIENT
  Age: 64 Year
  Sex: Male

DRUGS (1)
  1. AMOXICILLIN. [Suspect]
     Active Substance: AMOXICILLIN
     Indication: SINUSITIS
     Route: 065

REACTIONS (9)
  - Electroencephalogram abnormal [Recovered/Resolved]
  - Muscle twitching [Recovered/Resolved]
  - Clonic convulsion [Recovered/Resolved]
  - Neurotoxicity [Recovered/Resolved]
  - Epilepsy [Recovered/Resolved]
  - Clonus [Recovered/Resolved]
  - Seizure [Recovered/Resolved]
  - Dyskinesia [Recovered/Resolved]
  - Tremor [Recovered/Resolved]
